FAERS Safety Report 12977425 (Version 2)
Quarter: 2016Q4

REPORT INFORMATION
  Report Type: Spontaneous
  Country: JP (occurrence: JP)
  Receive Date: 20161128
  Receipt Date: 20161209
  Transmission Date: 20170207
  Serious: Yes (Other)
  Sender: FDA-Public Use
  Company Number: JP-SUN PHARMACEUTICAL INDUSTRIES LTD-2016RR-128271

PATIENT
  Age: 78 Year
  Sex: Male

DRUGS (16)
  1. CYCLOPHOSPHAMIDE. [Suspect]
     Active Substance: CYCLOPHOSPHAMIDE
     Indication: COLD TYPE HAEMOLYTIC ANAEMIA
  2. VINCRISTINE [Suspect]
     Active Substance: VINCRISTINE
     Indication: WALDENSTROM^S MACROGLOBULINAEMIA
     Dosage: 1.4 MG, 2 COURSES
     Route: 065
     Dates: start: 201210
  3. PREDNISOLONE. [Suspect]
     Active Substance: PREDNISOLONE
     Indication: WALDENSTROM^S MACROGLOBULINAEMIA
     Dosage: UNK
     Route: 048
     Dates: start: 201201
  4. PREDNISOLONE. [Suspect]
     Active Substance: PREDNISOLONE
     Indication: COLD TYPE HAEMOLYTIC ANAEMIA
     Dosage: 100 MG, FOR 5 DAYS
     Route: 048
     Dates: start: 201210
  5. MELPHALAN [Suspect]
     Active Substance: MELPHALAN
     Indication: COLD TYPE HAEMOLYTIC ANAEMIA
     Dosage: 2 MG, DAILY
     Route: 048
     Dates: start: 201208
  6. RITUXIMAB [Suspect]
     Active Substance: RITUXIMAB
     Indication: WALDENSTROM^S MACROGLOBULINAEMIA
     Dosage: 500 MG, 2 COURSES
     Route: 065
     Dates: start: 201210
  7. MELPHALAN [Suspect]
     Active Substance: MELPHALAN
     Indication: WALDENSTROM^S MACROGLOBULINAEMIA
     Dosage: UNK
     Route: 048
     Dates: start: 201201
  8. RITUXIMAB [Suspect]
     Active Substance: RITUXIMAB
     Indication: COLD TYPE HAEMOLYTIC ANAEMIA
  9. DOXORUBICIN [Suspect]
     Active Substance: DOXORUBICIN
     Indication: COLD TYPE HAEMOLYTIC ANAEMIA
  10. CYCLOPHOSPHAMIDE. [Suspect]
     Active Substance: CYCLOPHOSPHAMIDE
     Indication: COLD TYPE HAEMOLYTIC ANAEMIA
  11. DOXORUBICIN [Suspect]
     Active Substance: DOXORUBICIN
     Indication: WALDENSTROM^S MACROGLOBULINAEMIA
     Dosage: 50 MG, 2 COURSES
     Route: 065
     Dates: start: 201210
  12. FLUDARABINE [Suspect]
     Active Substance: FLUDARABINE PHOSPHATE
     Indication: WALDENSTROM^S MACROGLOBULINAEMIA
     Dosage: 25 MG/KG, FOR FIVE DAYS, 2 COURSES
     Route: 042
     Dates: start: 201102
  13. FLUDARABINE [Suspect]
     Active Substance: FLUDARABINE PHOSPHATE
     Indication: COLD TYPE HAEMOLYTIC ANAEMIA
  14. CYCLOPHOSPHAMIDE. [Suspect]
     Active Substance: CYCLOPHOSPHAMIDE
     Indication: WALDENSTROM^S MACROGLOBULINAEMIA
     Dosage: 50 MG, DAILY
     Route: 048
     Dates: start: 201205
  15. VINCRISTINE [Suspect]
     Active Substance: VINCRISTINE
     Indication: COLD TYPE HAEMOLYTIC ANAEMIA
  16. CYCLOPHOSPHAMIDE. [Suspect]
     Active Substance: CYCLOPHOSPHAMIDE
     Indication: WALDENSTROM^S MACROGLOBULINAEMIA
     Dosage: 500 MG, 2 COURSES
     Route: 065
     Dates: start: 201210

REACTIONS (3)
  - Bone marrow failure [Unknown]
  - Drug effect incomplete [Recovered/Resolved]
  - Neuropathy peripheral [Unknown]
